FAERS Safety Report 21385004 (Version 1)
Quarter: 2022Q3

REPORT INFORMATION
  Report Type: Spontaneous
  Country: US (occurrence: US)
  Receive Date: 20220928
  Receipt Date: 20220928
  Transmission Date: 20221027
  Serious: Yes (Hospitalization, Other)
  Sender: FDA-Public Use
  Company Number: US-AUROBINDO-AUR-APL-2022-038177

PATIENT
  Age: 66 Year
  Sex: Female

DRUGS (1)
  1. CLOZAPINE [Suspect]
     Active Substance: CLOZAPINE
     Indication: Product used for unknown indication
     Dosage: UNK
     Route: 065
     Dates: start: 20211105

REACTIONS (12)
  - Cerebrovascular accident [Unknown]
  - Atrial fibrillation [Unknown]
  - Seizure [Unknown]
  - Schizoaffective disorder bipolar type [Unknown]
  - Dementia [Unknown]
  - Angiopathy [Unknown]
  - Fall [Unknown]
  - Hypertension [Unknown]
  - Hallucination, auditory [Unknown]
  - Anticoagulant therapy [Unknown]
  - Post-acute COVID-19 syndrome [Unknown]
  - Therapy interrupted [Unknown]

NARRATIVE: CASE EVENT DATE: 20220914
